FAERS Safety Report 24187747 (Version 2)
Quarter: 2024Q3

REPORT INFORMATION
  Report Type: Report from Study
  Country: CO (occurrence: CO)
  Receive Date: 20240808
  Receipt Date: 20240812
  Transmission Date: 20241016
  Serious: Yes (Hospitalization)
  Sender: BIOVITRUM
  Company Number: CO-AstraZeneca-2024-263670

PATIENT
  Age: 262 Day
  Sex: Female

DRUGS (1)
  1. SYNAGIS [Suspect]
     Active Substance: PALIVIZUMAB
     Indication: Respiratory syncytial virus infection
     Dosage: 15MG/ML MONTHLY
     Route: 030
     Dates: start: 20240107

REACTIONS (2)
  - Bronchiolitis [Unknown]
  - Productive cough [Unknown]

NARRATIVE: CASE EVENT DATE: 20240710
